FAERS Safety Report 5240974-2 (Version None)
Quarter: 2007Q1

REPORT INFORMATION
  Report Type: 
  Country: None (occurrence: None)
  Receive Date: 20061201
  Receipt Date: 20060925
  Transmission Date: 20070707
  Serious: No
  Sender: FDA-Public Use
  Company Number: 2006PV018891

PATIENT
  Age: 56 Year
  Sex: Female

DRUGS (8)
  1. BYETTA [Suspect]
     Indication: DIABETES MELLITUS NON-INSULIN-DEPENDENT
     Dosage: 5 MCG;BID;SC
     Route: 058
     Dates: start: 20060601
  2. LANTUS [Concomitant]
  3. GLYBURIDE [Concomitant]
  4. DIOVAN [Concomitant]
  5. SPIRONOLACTONE [Concomitant]
  6. TORSEMIDE [Concomitant]
  7. MAGNESIUM OXIDE [Concomitant]
  8. LEVOTHYROXINE SODIUM [Concomitant]

REACTIONS (4)
  - BLOOD CREATININE INCREASED [None]
  - BLOOD UREA INCREASED [None]
  - GOUT [None]
  - KIDNEY INFECTION [None]
